FAERS Safety Report 8049099-4 (Version None)
Quarter: 2012Q1

REPORT INFORMATION
  Report Type: 
  Country: None (occurrence: None)
  Receive Date: 20120117
  Receipt Date: 20120109
  Transmission Date: 20120608
  Serious: Yes (Hospitalization)
  Sender: FDA-Public Use
  Company Number: US-BAYER-201036231NA

PATIENT
  Sex: Female
  Weight: 89.342 kg

DRUGS (2)
  1. YAZ [Suspect]
     Dosage: UNK
     Dates: start: 20080301
  2. MEDROXYPROGESTERONE [Concomitant]
     Dosage: 150 MG, UNK

REACTIONS (9)
  - DYSPEPSIA [None]
  - ABDOMINAL PAIN UPPER [None]
  - ABDOMINAL DISTENSION [None]
  - DIARRHOEA [None]
  - CHOLELITHIASIS [None]
  - CONSTIPATION [None]
  - ANXIETY [None]
  - FLATULENCE [None]
  - DEPRESSION [None]
